FAERS Safety Report 8084765-6 (Version None)
Quarter: 2012Q1

REPORT INFORMATION
  Report Type: 
  Country: None (occurrence: None)
  Receive Date: 20120128
  Receipt Date: 20110317
  Transmission Date: 20120608
  Serious: No
  Sender: FDA-Public Use
  Company Number: US-ABBOTT-11P-163-0712439-00

PATIENT
  Age: 23 Year
  Sex: Male

DRUGS (6)
  1. ANAFRANIL [Concomitant]
     Indication: ANXIETY
  2. HUMIRA [Suspect]
     Indication: CROHN'S DISEASE
     Dates: start: 20110101
  3. XANAX [Concomitant]
     Indication: PRODUCT USED FOR UNKNOWN INDICATION
     Dosage: DAILY
  4. LEXAPRO [Concomitant]
     Indication: ANXIETY
  5. PENTASA [Concomitant]
     Indication: CROHN'S DISEASE
  6. SEROQUEL [Concomitant]
     Indication: ANXIETY
     Dosage: 50 XR DAILY

REACTIONS (2)
  - RASH PUSTULAR [None]
  - RASH MACULAR [None]
